FAERS Safety Report 21863004 (Version 2)
Quarter: 2023Q1

REPORT INFORMATION
  Report Type: Spontaneous
  Country: US (occurrence: US)
  Receive Date: 20230114
  Receipt Date: 20230214
  Transmission Date: 20230418
  Serious: No
  Sender: FDA-Public Use
  Company Number: US-SA-SAC20230113000362

PATIENT
  Sex: Female

DRUGS (2)
  1. DUPIXENT [Suspect]
     Active Substance: DUPILUMAB
     Indication: Dermatitis atopic
     Dosage: 300 MG, OTHER-FREQUENCY
     Route: 058
  2. DUPIXENT [Suspect]
     Active Substance: DUPILUMAB
     Indication: Dermatitis atopic
     Dosage: 300 MG, FREQUENCY-OTHER
     Route: 058

REACTIONS (3)
  - Injection site pain [Unknown]
  - Alopecia [Unknown]
  - Product preparation error [Unknown]
